FAERS Safety Report 22373455 (Version 2)
Quarter: 2023Q4

REPORT INFORMATION
  Report Type: Report from Study
  Country: RS (occurrence: RS)
  Receive Date: 20230526
  Receipt Date: 20231129
  Transmission Date: 20240110
  Serious: Yes (Hospitalization, Other)
  Sender: FDA-Public Use
  Company Number: RS-ZYMEWORKS BC INC.-2023ZW000133

PATIENT
  Age: 55 Year
  Sex: Male
  Weight: 65 kg

DRUGS (6)
  1. TISLELIZUMAB [Suspect]
     Active Substance: TISLELIZUMAB
     Indication: Adenocarcinoma gastric
     Dosage: 200 MG, Q3W (EVERY 21 DAYS)
     Route: 042
     Dates: start: 20230201
  2. TISLELIZUMAB [Suspect]
     Active Substance: TISLELIZUMAB
     Dosage: 200 MG (EVERY 21 DAYS, CYCLE 4 DAY 1)
     Route: 042
     Dates: start: 20230418
  3. ZANIDATAMAB [Suspect]
     Active Substance: ZANIDATAMAB
     Indication: Adenocarcinoma gastric
     Dosage: 2400 MG, Q3W (EVERY 21 DAYS)
     Route: 042
     Dates: start: 20230201
  4. ZANIDATAMAB [Suspect]
     Active Substance: ZANIDATAMAB
     Dosage: 2400 MG (EVERY 21 DAYS, CYCLE 4 DAY 1)
     Route: 042
     Dates: start: 20230418
  5. CAPECITABINE [Suspect]
     Active Substance: CAPECITABINE
     Indication: Adenocarcinoma gastric
     Dosage: 2000 MG/M2, EVERY 15 DAYS
     Route: 065
     Dates: start: 20230201
  6. CAPECITABINE [Suspect]
     Active Substance: CAPECITABINE
     Dosage: 2000 MG/M2, (EVERY 15 DAYS, CYCLE 4 DAY 1)
     Route: 065
     Dates: start: 20230502

REACTIONS (1)
  - Anal haemorrhage [Recovered/Resolved]

NARRATIVE: CASE EVENT DATE: 20230514
